FAERS Safety Report 7580849-7 (Version None)
Quarter: 2011Q2

REPORT INFORMATION
  Report Type: 
  Country: None (occurrence: None)
  Receive Date: 20110629
  Receipt Date: 20110620
  Transmission Date: 20111010
  Serious: Yes (Other)
  Sender: FDA-Public Use
  Company Number: JP-BRISTOL-MYERS SQUIBB COMPANY-15859150

PATIENT
  Age: 45 Year
  Sex: Male

DRUGS (7)
  1. GLYBURIDE [Concomitant]
     Route: 048
  2. MIGLITOL [Concomitant]
     Route: 048
  3. BEZAFIBRATE [Concomitant]
     Route: 048
  4. HYZAAR [Concomitant]
     Dosage: PREMINENT
     Route: 048
  5. ACTOS [Concomitant]
     Route: 048
  6. METFORMIN HCL [Suspect]
     Indication: DIABETES MELLITUS
     Route: 048
     Dates: start: 20110506, end: 20110617
  7. METFORMIN HCL [Concomitant]
     Dosage: UNK-MAY2011 17JUN2011-STOPPED
     Dates: start: 20110501

REACTIONS (6)
  - GAIT DISTURBANCE [None]
  - BLOOD PRESSURE INCREASED [None]
  - MALAISE [None]
  - PALPITATIONS [None]
  - CHOKING SENSATION [None]
  - HEART RATE ABNORMAL [None]
